FAERS Safety Report 6007472-X (Version None)
Quarter: 2008Q4

REPORT INFORMATION
  Report Type: 
  Country: None (occurrence: None)
  Receive Date: 20081217
  Receipt Date: 20080606
  Transmission Date: 20090506
  Serious: No
  Sender: FDA-Public Use
  Company Number: US-ASTRAZENECA-2008UW08470

PATIENT
  Age: 64 Year
  Sex: Female
  Weight: 67.6 kg

DRUGS (2)
  1. CRESTOR [Suspect]
     Indication: BLOOD CHOLESTEROL INCREASED
     Route: 048
     Dates: start: 20080204
  2. ZOLOFT [Concomitant]

REACTIONS (2)
  - DYSPEPSIA [None]
  - INSOMNIA [None]
